FAERS Safety Report 22083150 (Version 1)
Quarter: 2023Q1

REPORT INFORMATION
  Report Type: Spontaneous
  Country: CA (occurrence: CA)
  Receive Date: 20230310
  Receipt Date: 20230310
  Transmission Date: 20230418
  Serious: Yes (Hospitalization)
  Sender: FDA-Public Use
  Company Number: None

PATIENT
  Age: 55 Year
  Sex: Female

DRUGS (3)
  1. MYCOPHENOLATE MOFETIL [Suspect]
     Active Substance: MYCOPHENOLATE MOFETIL
     Indication: Prophylaxis against transplant rejection
     Dosage: FREQUENCY: 2 EVERY 1 DAYS
  2. CYCLOSPORINE [Suspect]
     Active Substance: CYCLOSPORINE
     Indication: Prophylaxis against transplant rejection
     Dosage: FREQUENCY: 2 EVERY 1 DAYS
  3. PREDNISONE [Suspect]
     Active Substance: PREDNISONE
     Indication: Prophylaxis against transplant rejection
     Dosage: FREQUENCY: 1 EVERY 1 DAYS

REACTIONS (6)
  - Cytomegalovirus viraemia [Unknown]
  - Diarrhoea [Unknown]
  - Disseminated cryptococcosis [Unknown]
  - Encephalitis [Unknown]
  - Pneumonia [Unknown]
  - Sepsis [Unknown]
